FAERS Safety Report 9045607 (Version 1)
Quarter: 2013Q1

REPORT INFORMATION
  Report Type: Report from Study
  Country: US (occurrence: US)
  Receive Date: 20130131
  Receipt Date: 20130131
  Transmission Date: 20140127
  Serious: No
  Sender: FDA-Public Use
  Company Number: US-ABBOTT-12P-163-1011128-00

PATIENT
  Age: 19 Year
  Sex: Female

DRUGS (10)
  1. HUMIRA [Suspect]
     Indication: CROHN^S DISEASE
     Dosage: STARTER DOSE
     Dates: start: 20121012, end: 20121012
  2. HUMIRA [Suspect]
     Dosage: STARTER DOSE
     Dates: start: 20121026, end: 20121026
  3. HUMIRA [Suspect]
     Dates: start: 20121109
  4. COCONUT OIL [Concomitant]
     Indication: PRODUCT USED FOR UNKNOWN INDICATION
     Dosage: DAILY
  5. BIOTIN [Concomitant]
     Indication: PRODUCT USED FOR UNKNOWN INDICATION
     Dosage: DAILY
  6. MULTIVITAMIN [Concomitant]
     Indication: PRODUCT USED FOR UNKNOWN INDICATION
     Dosage: DAILY
  7. OMEGA 3 [Concomitant]
     Indication: PRODUCT USED FOR UNKNOWN INDICATION
     Dosage: DAILY
  8. TRAMADOL [Concomitant]
     Indication: PAIN
  9. UNKNOWN PILL [Concomitant]
     Indication: MUSCLE SPASMS
  10. UNKNOWN MEDICATIONS (FATHER UNABLE TO GIVE COMPLETE MEDICATION INFO.) [Concomitant]
     Indication: PRODUCT USED FOR UNKNOWN INDICATION

REACTIONS (3)
  - Pain [Not Recovered/Not Resolved]
  - Abdominal pain upper [Unknown]
  - Diarrhoea [Unknown]
